FAERS Safety Report 4610734-1 (Version None)
Quarter: 2005Q2

REPORT INFORMATION
  Report Type: 
  Country: None (occurrence: None)
  Receive Date: 20050301
  Receipt Date: 20041217
  Transmission Date: 20051028
  Serious: No
  Sender: FDA-Public Use
  Company Number: 04H-163-0283560-00

PATIENT
  Age: 45 Year
  Sex: Female
  Weight: 45.3597 kg

DRUGS (3)
  1. DEFEROXAMINE MESYLATE [Suspect]
     Indication: HAEMOCHROMATOSIS
     Dosage: 2 GM, THREE TIMES A WEEK, INTRAVENOUS
     Route: 042
     Dates: start: 20040501, end: 20041122
  2. DEFEROXAMINE MESILATE [Concomitant]
  3. ZINC [Concomitant]

REACTIONS (2)
  - HEARING IMPAIRED [None]
  - VISUAL DISTURBANCE [None]
